FAERS Safety Report 12110453 (Version 1)
Quarter: 2016Q1

REPORT INFORMATION
  Report Type: Spontaneous
  Country: US (occurrence: US)
  Receive Date: 20160224
  Receipt Date: 20160224
  Transmission Date: 20160526
  Serious: No
  Sender: FDA-Public Use
  Company Number: US-SHIRE-US201601869

PATIENT
  Sex: Male
  Weight: 76.19 kg

DRUGS (2)
  1. VYVANSE [Suspect]
     Active Substance: LISDEXAMFETAMINE DIMESYLATE
     Indication: ATTENTION DEFICIT/HYPERACTIVITY DISORDER
     Dosage: 30 MG, 1X/DAY:QD ( IN THE MORNING)
     Route: 048
  2. VYVANSE [Suspect]
     Active Substance: LISDEXAMFETAMINE DIMESYLATE
     Indication: OPPOSITIONAL DEFIANT DISORDER
     Dosage: 20 MG, 1X/DAY:QD (AT NOON)
     Route: 048

REACTIONS (4)
  - Drug dose omission [Unknown]
  - Inappropriate schedule of drug administration [Unknown]
  - Adverse event [Unknown]
  - Increased appetite [Unknown]
